FAERS Safety Report 25975912 (Version 1)
Quarter: 2025Q4

REPORT INFORMATION
  Report Type: Report from Study
  Country: GB (occurrence: GB)
  Receive Date: 20251029
  Receipt Date: 20251029
  Transmission Date: 20260118
  Serious: Yes (Hospitalization)
  Sender: TEVA
  Company Number: GB-TEVA-VS-3384642

PATIENT
  Age: 58 Year
  Sex: Female

DRUGS (1)
  1. AJOVY [Suspect]
     Active Substance: FREMANEZUMAB-VFRM
     Indication: Migraine
     Dosage: FROM STRENGTH: 225MG/1.5ML
     Route: 058

REACTIONS (5)
  - Knee arthroplasty [Unknown]
  - Memory impairment [Unknown]
  - Procedural failure [Unknown]
  - Product dose omission issue [Unknown]
  - Migraine [Unknown]

NARRATIVE: CASE EVENT DATE: 20250101
